FAERS Safety Report 22629328 (Version 1)
Quarter: 2023Q2

REPORT INFORMATION
  Report Type: Spontaneous
  Country: US (occurrence: None)
  Receive Date: 20230619
  Receipt Date: 20230619
  Transmission Date: 20230722
  Serious: No
  Sender: FDA-Public Use
  Company Number: None

PATIENT
  Sex: Female

DRUGS (14)
  1. LENALIDOMIDE [Suspect]
     Active Substance: LENALIDOMIDE
     Indication: Plasma cell myeloma
     Dosage: FREQUENCY : DAILY;?
     Route: 048
  2. ASPIRIN [Concomitant]
     Active Substance: ASPIRIN
  3. AUGMENTIN [Concomitant]
     Active Substance: AMOXICILLIN\CLAVULANATE POTASSIUM
  4. CALTRATE [Concomitant]
     Active Substance: CALCIUM CARBONATE
  5. COENZYME Q10 [Concomitant]
     Active Substance: DIETARY SUPPLEMENT\UBIDECARENONE
  6. MAGNESIUM [Concomitant]
     Active Substance: MAGNESIUM
  7. VITAMINS [Concomitant]
     Active Substance: VITAMINS
  8. ORACEA [Concomitant]
     Active Substance: DOXYCYCLINE
  9. VITAMIN C [Concomitant]
     Active Substance: ASCORBIC ACID
  10. RESTASIS [Concomitant]
     Active Substance: CYCLOSPORINE
  11. TRAZODONE [Concomitant]
     Active Substance: TRAZODONE HYDROCHLORIDE
  12. VALACYCLOVIR [Concomitant]
     Active Substance: VALACYCLOVIR HYDROCHLORIDE
  13. VASCEPA [Concomitant]
     Active Substance: ICOSAPENT ETHYL
  14. VYTORIN [Concomitant]
     Active Substance: EZETIMIBE\SIMVASTATIN

REACTIONS (1)
  - Diverticulitis [None]
